FAERS Safety Report 5109923-1 (Version None)
Quarter: 2006Q3

REPORT INFORMATION
  Report Type: 
  Country: None (occurrence: None)
  Receive Date: 20060731
  Receipt Date: 20060404
  Transmission Date: 20061208
  Serious: No
  Sender: FDA-Public Use
  Company Number: 2006PV011494

PATIENT
  Age: 51 Year
  Sex: Female
  Weight: 88.905 kg

DRUGS (2)
  1. BYETTA [Suspect]
     Indication: DIABETES MELLITUS NON-INSULIN-DEPENDENT
     Dosage: 5 MCG;BID;SC
     Route: 058
     Dates: start: 20060317
  2. GLUCOVANCE [Concomitant]

REACTIONS (6)
  - ANOREXIA [None]
  - DYSPEPSIA [None]
  - INJECTION SITE BRUISING [None]
  - NAUSEA [None]
  - VOMITING [None]
  - WEIGHT DECREASED [None]
